FAERS Safety Report 14227270 (Version 3)
Quarter: 2018Q1

REPORT INFORMATION
  Report Type: Spontaneous
  Country: US (occurrence: US)
  Receive Date: 20171127
  Receipt Date: 20180205
  Transmission Date: 20180508
  Serious: Yes (Other)
  Sender: FDA-Public Use
  Company Number: US-PFIZER INC-2017501188

PATIENT
  Sex: Female
  Weight: 106.5 kg

DRUGS (1)
  1. MEDROXYPROGESTERONE ACETATE. [Suspect]
     Active Substance: MEDROXYPROGESTERONE ACETATE
     Indication: AMENORRHOEA
     Dosage: 1 ML, EVERY 12 WEEKS

REACTIONS (5)
  - Injection site indentation [Not Recovered/Not Resolved]
  - Product administered at inappropriate site [Unknown]
  - Menorrhagia [Not Recovered/Not Resolved]
  - Product quality issue [Unknown]
  - Drug ineffective for unapproved indication [Unknown]

NARRATIVE: CASE EVENT DATE: 201702
